FAERS Safety Report 7859768-4 (Version None)
Quarter: 2011Q4

REPORT INFORMATION
  Report Type: 
  Country: None (occurrence: None)
  Receive Date: 20111026
  Receipt Date: 20111026
  Transmission Date: 20120403
  Serious: Yes (Hospitalization)
  Sender: FDA-Public Use
  Company Number: None

PATIENT
  Sex: Female
  Weight: 79.4 kg

DRUGS (3)
  1. BENDAMUSTINE 90 MG/M2 MILLENIUM [Suspect]
     Indication: CHRONIC LYMPHOCYTIC LEUKAEMIA
     Dosage: 171 MG X 2 DYS 1,2 EVERY 28 D IV C1D2
     Route: 042
     Dates: start: 20111006
  2. BENDAMUSTINE 90 MG/M2 MILLENIUM [Suspect]
     Indication: CHRONIC LYMPHOCYTIC LEUKAEMIA
     Dosage: 171 MG X 2 DYS 1,2 EVERY 28 D IV C1D2
     Route: 042
     Dates: start: 20111007
  3. RITUXIMAB 375 MG/M2 GENENTECH [Suspect]
     Indication: CHRONIC LYMPHOCYTIC LEUKAEMIA
     Dosage: 713 MG DY 1 EVERY 28 DAYS IV  C1D1
     Route: 042
     Dates: start: 20111006

REACTIONS (7)
  - GENERALISED OEDEMA [None]
  - HYPOKALAEMIA [None]
  - FEBRILE NEUTROPENIA [None]
  - HAEMOLYTIC ANAEMIA [None]
  - THROMBOCYTOPENIA [None]
  - PNEUMONIA [None]
  - SEPTIC SHOCK [None]
